FAERS Safety Report 6484802-6 (Version None)
Quarter: 2009Q4

REPORT INFORMATION
  Report Type: 
  Country: None (occurrence: None)
  Receive Date: 20091209
  Receipt Date: 20090413
  Transmission Date: 20100525
  Serious: No
  Sender: FDA-Public Use
  Company Number: A0778432A

PATIENT
  Age: 66 Year
  Sex: Male

DRUGS (4)
  1. AVANDAMET [Suspect]
     Route: 048
     Dates: start: 20080401
  2. HUMALOG [Suspect]
     Dosage: 75UNIT TWICE PER DAY
  3. PRILOSEC [Concomitant]
  4. ASPIRIN [Concomitant]

REACTIONS (2)
  - BLOOD GLUCOSE DECREASED [None]
  - PRESYNCOPE [None]
